FAERS Safety Report 9255110 (Version 1)
Quarter: 2013Q1

REPORT INFORMATION
  Report Type: Spontaneous
  Country: US (occurrence: None)
  Receive Date: 20121212
  Receipt Date: 20121212
  Transmission Date: 20140127
  Serious: No
  Sender: FDA-Public Use
  Company Number: 1211USA002730

PATIENT
  Age: 45 Year
  Sex: Male

DRUGS (3)
  1. PEGINTRON [Suspect]
     Indication: HEPATITIS C
     Dates: start: 201208
  2. REBETOL [Suspect]
     Route: 048
  3. VICTRELIS [Suspect]
     Route: 048

REACTIONS (4)
  - Dysgeusia [None]
  - Vomiting [None]
  - Headache [None]
  - Dehydration [None]
